FAERS Safety Report 8524956-0 (Version None)
Quarter: 2012Q3

REPORT INFORMATION
  Report Type: 
  Country: None (occurrence: None)
  Receive Date: 20120720
  Receipt Date: 20120713
  Transmission Date: 20120928
  Serious: Yes (Other)
  Sender: FDA-Public Use
  Company Number: US-JNJFOC-20120708920

PATIENT
  Sex: Male

DRUGS (2)
  1. BENADRYL [Suspect]
     Indication: PRODUCT USED FOR UNKNOWN INDICATION
     Route: 048
  2. UNSPECIFIED NSAIDS [Suspect]
     Indication: PRODUCT USED FOR UNKNOWN INDICATION
     Route: 065

REACTIONS (4)
  - SENSORY DISTURBANCE [None]
  - HEADACHE [None]
  - HYPERACUSIS [None]
  - TRANSIENT ISCHAEMIC ATTACK [None]
